FAERS Safety Report 12317490 (Version 1)
Quarter: 2016Q2

REPORT INFORMATION
  Report Type: Spontaneous
  Country: US (occurrence: US)
  Receive Date: 20160429
  Receipt Date: 20160429
  Transmission Date: 20160815
  Serious: Yes (Other)
  Sender: FDA-Public Use
  Company Number: US-ABBVIE-16P-163-1615965-00

PATIENT
  Age: 64 Year
  Sex: Male

DRUGS (1)
  1. KALETRA [Suspect]
     Active Substance: LOPINAVIR\RITONAVIR
     Indication: HIV INFECTION
     Dosage: 2 TABLETS IN THE MORNING AND PM
     Route: 048

REACTIONS (4)
  - Renal failure [Not Recovered/Not Resolved]
  - Drug dose omission [Not Recovered/Not Resolved]
  - Anal cancer [Recovered/Resolved]
  - Neuropathy peripheral [Not Recovered/Not Resolved]

NARRATIVE: CASE EVENT DATE: 2014
